FAERS Safety Report 9772554 (Version 1)
Quarter: 2013Q4

REPORT INFORMATION
  Report Type: Spontaneous
  Country: US (occurrence: US)
  Receive Date: 20131219
  Receipt Date: 20131219
  Transmission Date: 20140711
  Serious: Yes (Other)
  Sender: FDA-Public Use
  Company Number: US-BAYER-2013-155199

PATIENT
  Age: 20 Year
  Sex: Female

DRUGS (4)
  1. YAZ [Suspect]
  2. VICODIN [Concomitant]
  3. PIROXICAM [Concomitant]
     Dosage: 20 MG, UNK
  4. MOTRIN [Concomitant]

REACTIONS (1)
  - Deep vein thrombosis [None]
